FAERS Safety Report 8172688-3 (Version None)
Quarter: 2012Q1

REPORT INFORMATION
  Report Type: 
  Country: None (occurrence: None)
  Receive Date: 20120223
  Receipt Date: 20120202
  Transmission Date: 20120608
  Serious: Yes (Hospitalization)
  Sender: FDA-Public Use
  Company Number: JPI-P-019827

PATIENT
  Age: 64 Year
  Sex: Male

DRUGS (8)
  1. MODAFINIL [Concomitant]
  2. XYREM [Suspect]
     Indication: CATAPLEXY
     Dosage: SEE IMAGE, ORAL
     Route: 048
     Dates: start: 20110608, end: 20110618
  3. XYREM [Suspect]
     Indication: CATAPLEXY
     Dosage: SEE IMAGE, ORAL
     Route: 048
     Dates: start: 20120128, end: 20120130
  4. XYREM [Suspect]
     Indication: CATAPLEXY
     Dosage: SEE IMAGE, ORAL
     Route: 048
     Dates: start: 20120131
  5. XYREM [Suspect]
     Indication: CATAPLEXY
     Dosage: SEE IMAGE, ORAL
     Route: 048
     Dates: start: 20111017, end: 20120125
  6. XYREM [Suspect]
     Indication: CATAPLEXY
     Dosage: SEE IMAGE, ORAL
     Route: 048
     Dates: start: 20110619, end: 20110629
  7. XYREM [Suspect]
     Indication: CATAPLEXY
     Dosage: SEE IMAGE, ORAL
     Route: 048
     Dates: start: 20110901, end: 20111016
  8. XYREM [Suspect]
     Indication: CATAPLEXY
     Dosage: SEE IMAGE, ORAL
     Route: 048
     Dates: start: 20110630, end: 20110830

REACTIONS (1)
  - ROTATOR CUFF REPAIR [None]
